FAERS Safety Report 7843410-2 (Version None)
Quarter: 2011Q4

REPORT INFORMATION
  Report Type: 
  Country: None (occurrence: None)
  Receive Date: 20111025
  Receipt Date: 20111012
  Transmission Date: 20120403
  Serious: Yes (Hospitalization)
  Sender: FDA-Public Use
  Company Number: GB-ELI_LILLY_AND_COMPANY-GB201110003099

PATIENT
  Age: 81 Year
  Sex: Male
  Weight: 107 kg

DRUGS (5)
  1. DEXAMETHASONE [Suspect]
     Indication: NON-HODGKIN'S LYMPHOMA
     Dosage: EACH CYCLE EVERY 3 WEEKS
     Route: 048
     Dates: start: 20110901
  2. GEMCITABINE HYDROCHLORIDE [Suspect]
     Indication: NON-HODGKIN'S LYMPHOMA
     Dosage: EACH CYCLE EVERY 3 WEEKS
     Route: 042
     Dates: start: 20110902
  3. CISPLATIN [Suspect]
     Indication: NON-HODGKIN'S LYMPHOMA
     Dosage: EACH CYCLE EVERY 3 WEEKS
     Route: 042
     Dates: start: 20110901
  4. OTHER PHARMA COMPANY INV DRUG [Suspect]
     Indication: NON-HODGKIN'S LYMPHOMA
     Dosage: EACH CYCLE EVERY 3 WEEKS
     Route: 042
     Dates: start: 20110902
  5. RITUXIMAB [Suspect]
     Indication: NON-HODGKIN'S LYMPHOMA
     Dosage: EACH CYCLE EVERY 3 WEEKS
     Route: 042
     Dates: start: 20110901

REACTIONS (2)
  - LOBAR PNEUMONIA [None]
  - NEUTROPENIC SEPSIS [None]
